FAERS Safety Report 9995538 (Version 2)
Quarter: 2014Q2

REPORT INFORMATION
  Report Type: Spontaneous
  Country: CR (occurrence: CR)
  Receive Date: 20140311
  Receipt Date: 20140514
  Transmission Date: 20141212
  Serious: Yes (Other)
  Sender: FDA-Public Use
  Company Number: CR-SA-2014SA027178

PATIENT
  Age: 30 Year
  Sex: Female

DRUGS (2)
  1. ARAVA [Suspect]
     Indication: RHEUMATOID ARTHRITIS
     Dosage: STRENGTH: 20 MG
     Route: 048
     Dates: start: 201211, end: 20140124
  2. METHOTREXATE [Concomitant]
     Indication: RHEUMATOID ARTHRITIS
     Route: 048
     Dates: end: 20140224

REACTIONS (2)
  - Abortion [Unknown]
  - Exposure during pregnancy [Unknown]
